FAERS Safety Report 4829427-0 (Version None)
Quarter: 2005Q4

REPORT INFORMATION
  Report Type: 
  Country: None (occurrence: None)
  Receive Date: 20051116
  Receipt Date: 20051103
  Transmission Date: 20060501
  Serious: Yes (Other)
  Sender: FDA-Public Use
  Company Number: PHBS2005IE16168

PATIENT

DRUGS (1)
  1. ZOMETA [Suspect]

REACTIONS (1)
  - OSTEONECROSIS [None]
